FAERS Safety Report 11138554 (Version 1)
Quarter: 2015Q2

REPORT INFORMATION
  Report Type: Spontaneous
  Country: US (occurrence: US)
  Receive Date: 20150527
  Receipt Date: 20150527
  Transmission Date: 20150821
  Serious: No
  Sender: FDA-Public Use
  Company Number: US-TEVA-503174USA

PATIENT
  Sex: Male

DRUGS (9)
  1. ASPIRIN. [Concomitant]
     Active Substance: ASPIRIN
     Dosage: 81 MILLIGRAM DAILY;
  2. HCTZ [Concomitant]
     Active Substance: HYDROCHLOROTHIAZIDE
     Dosage: 50 MILLIGRAM DAILY;
  3. PRESERVISION [Concomitant]
     Active Substance: MINERALS\VITAMINS
  4. SIMVASTATIN. [Concomitant]
     Active Substance: SIMVASTATIN
     Dosage: 25 MILLIGRAM DAILY;
  5. OMEPRAZOLE. [Concomitant]
     Active Substance: OMEPRAZOLE
     Dosage: 20 MILLIGRAM DAILY;
  6. PLAVIX [Concomitant]
     Active Substance: CLOPIDOGREL BISULFATE
     Dosage: 75 MILLIGRAM DAILY;
  7. CARVEDILOL. [Concomitant]
     Active Substance: CARVEDILOL
     Dosage: 12.5 MILLIGRAM DAILY;
  8. SOTALOL. [Suspect]
     Active Substance: SOTALOL
     Dosage: 240 MILLIGRAM DAILY;
     Route: 065
  9. SLO-NIACIN [Concomitant]
     Active Substance: DIETARY SUPPLEMENT
     Dosage: 1000 MILLIGRAM DAILY;

REACTIONS (8)
  - Malaise [Unknown]
  - Fall [Unknown]
  - Laceration [Unknown]
  - Vertigo [Unknown]
  - Contusion [Unknown]
  - Peripheral swelling [Unknown]
  - Scratch [Unknown]
  - Balance disorder [Unknown]
